FAERS Safety Report 4909434-X (Version None)
Quarter: 2006Q1

REPORT INFORMATION
  Report Type: 
  Country: None (occurrence: None)
  Receive Date: 20060209
  Receipt Date: 20060209
  Transmission Date: 20060701
  Serious: Yes (Life-Threatening, Hospitalization, Other)
  Sender: FDA-Public Use
  Company Number: None

PATIENT
  Age: 46 Year
  Sex: Female
  Weight: 108 kg

DRUGS (6)
  1. ENALAPRIL 20 MG [Suspect]
     Indication: HYPERTENSION
     Dosage: 20 MG TWO TIMES DAILY PO
     Route: 048
  2. DIVALPROIC ACID [Concomitant]
  3. HYDROCHLOROTHIAZIDE [Concomitant]
  4. RISPERDAL [Concomitant]
  5. CLONAZEPAM [Concomitant]
  6. AMLODIPINE [Concomitant]

REACTIONS (3)
  - DYSPHAGIA [None]
  - PHARYNGEAL OEDEMA [None]
  - SWOLLEN TONGUE [None]
